FAERS Safety Report 13703241 (Version 1)
Quarter: 2017Q2

REPORT INFORMATION
  Report Type: Spontaneous
  Country: US (occurrence: US)
  Receive Date: 20170629
  Receipt Date: 20170629
  Transmission Date: 20170830
  Serious: No
  Sender: FDA-Public Use
  Company Number: US-TEVA-781444USA

PATIENT
  Sex: Male

DRUGS (2)
  1. SYMBICORT [Concomitant]
     Active Substance: BUDESONIDE\FORMOTEROL FUMARATE DIHYDRATE
  2. PROAIR HFA [Suspect]
     Active Substance: ALBUTEROL SULFATE
     Dosage: 1 PUFF EVERY MORNING

REACTIONS (1)
  - Blood alcohol increased [Unknown]

NARRATIVE: CASE EVENT DATE: 20170505
